FAERS Safety Report 12676377 (Version 1)
Quarter: 2016Q3

REPORT INFORMATION
  Report Type: Spontaneous
  Country: US (occurrence: None)
  Receive Date: 20160822
  Receipt Date: 20160822
  Transmission Date: 20161109
  Serious: Yes (Disabling)
  Sender: FDA-Public Use
  Company Number: None

PATIENT
  Age: 48 Year
  Sex: Female
  Weight: 74.39 kg

DRUGS (5)
  1. ARAVA [Concomitant]
     Active Substance: LEFLUNOMIDE
  2. HUMIRA [Suspect]
     Active Substance: ADALIMUMAB
     Indication: ANKYLOSING SPONDYLITIS
     Route: 058
     Dates: start: 20160330, end: 20160615
  3. CLOBETASOL PROPIONATE. [Concomitant]
     Active Substance: CLOBETASOL PROPIONATE
  4. PREDNISONE. [Concomitant]
     Active Substance: PREDNISONE
  5. TIMOLOL. [Concomitant]
     Active Substance: TIMOLOL

REACTIONS (3)
  - Pain [None]
  - Activities of daily living impaired [None]
  - Pustular psoriasis [None]

NARRATIVE: CASE EVENT DATE: 20160622
